FAERS Safety Report 25051167 (Version 1)
Quarter: 2025Q1

REPORT INFORMATION
  Report Type: Spontaneous
  Country: US (occurrence: None)
  Receive Date: 20250307
  Receipt Date: 20250307
  Transmission Date: 20250408
  Serious: No
  Sender: FDA-CTU
  Company Number: None

PATIENT
  Age: 66 Year
  Sex: Female
  Weight: 63.45 kg

DRUGS (8)
  1. XIIDRA [Suspect]
     Active Substance: LIFITEGRAST
     Indication: Dry eye
     Dosage: 1 DROP TWICE A DAY OPHTHALMIC
     Route: 047
     Dates: start: 20250201, end: 20250227
  2. REPATHA [Concomitant]
     Active Substance: EVOLOCUMAB
  3. LOSARTAN [Concomitant]
     Active Substance: LOSARTAN
  4. XANAX [Concomitant]
     Active Substance: ALPRAZOLAM
  5. VALACYCLOVIR [Concomitant]
     Active Substance: VALACYCLOVIR HYDROCHLORIDE
  6. ASPIRIN [Concomitant]
     Active Substance: ASPIRIN
  7. VITAMINS [Concomitant]
     Active Substance: VITAMINS
  8. LUTEIN [Concomitant]
     Active Substance: LUTEIN

REACTIONS (3)
  - Head discomfort [None]
  - Ear discomfort [None]
  - Ear discomfort [None]

NARRATIVE: CASE EVENT DATE: 20250227
